FAERS Safety Report 12988181 (Version 1)
Quarter: 2016Q4

REPORT INFORMATION
  Report Type: Report from Study
  Country: GB (occurrence: GB)
  Receive Date: 20161130
  Receipt Date: 20161130
  Transmission Date: 20170207
  Serious: Yes (Other)
  Sender: FDA-Public Use
  Company Number: GB-EMD SERONO-8121006

PATIENT
  Sex: Male
  Weight: 63 kg

DRUGS (6)
  1. HYDROCORTISONE. [Concomitant]
     Active Substance: HYDROCORTISONE
     Indication: PRODUCT USED FOR UNKNOWN INDICATION
     Dosage: HYDROCORTISONE 10 MG TABLETS OR 2.5 MG LOZENGES, 7.5 MG MANE, 5MG MID AFTERNOON AND 2.5 MG NOCTE (8.
  2. HYDROCORTISONE SODIUM PHOSPHATE [Concomitant]
     Active Substance: HYDROCORTISONE SODIUM PHOSPHATE
     Indication: PRODUCT USED FOR UNKNOWN INDICATION
     Route: 030
  3. SAIZEN [Suspect]
     Active Substance: SOMATROPIN
     Indication: GROWTH HORMONE DEFICIENCY
     Dosage: CARTRIDGES 1.6 MG DAILY (25.5 MCG/KG/DAY)
     Route: 058
     Dates: start: 20010426
  4. THYROXINE [Concomitant]
     Active Substance: LEVOTHYROXINE
     Indication: PRODUCT USED FOR UNKNOWN INDICATION
  5. DESMOPRESSIN [Concomitant]
     Active Substance: DESMOPRESSIN
     Indication: PRODUCT USED FOR UNKNOWN INDICATION
  6. NEBIDO [Concomitant]
     Active Substance: TESTOSTERONE UNDECANOATE
     Indication: PRODUCT USED FOR UNKNOWN INDICATION
     Route: 030

REACTIONS (7)
  - Sinus disorder [Unknown]
  - Hypopituitarism [Unknown]
  - Hemiplegia [Unknown]
  - Osteomyelitis [Unknown]
  - Craniofacial deformity [Unknown]
  - Dyskinesia [Unknown]
  - Diabetes insipidus [Unknown]
